FAERS Safety Report 5348193-6 (Version None)
Quarter: 2007Q2

REPORT INFORMATION
  Report Type: 
  Country: None (occurrence: None)
  Receive Date: 20070606
  Receipt Date: 20070528
  Transmission Date: 20071010
  Serious: Yes (Other)
  Sender: FDA-Public Use
  Company Number: JP-PFIZER INC-2007041240

PATIENT
  Sex: Female
  Weight: 47.5 kg

DRUGS (9)
  1. ZOLOFT [Suspect]
     Indication: DEPRESSION
     Dosage: DAILY DOSE:50MG
     Route: 048
     Dates: start: 20070410, end: 20070514
  2. LEXOTAN [Concomitant]
     Indication: ANXIETY
     Route: 048
  3. HIRNAMIN [Concomitant]
     Route: 048
  4. PEROSPIRONE [Concomitant]
     Indication: PERSONALITY DISORDER
     Route: 048
     Dates: start: 20061214, end: 20070514
  5. RISPERDAL [Concomitant]
     Route: 048
     Dates: start: 20061214, end: 20070521
  6. TETRAMIDE [Concomitant]
     Route: 048
  7. DORAL [Concomitant]
     Route: 048
  8. MYSLEE [Concomitant]
     Indication: INSOMNIA
     Route: 048
  9. DALMATE [Concomitant]
     Route: 048

REACTIONS (3)
  - OVERDOSE [None]
  - RESTLESSNESS [None]
  - SUICIDE ATTEMPT [None]
